FAERS Safety Report 15426460 (Version 1)
Quarter: 2018Q3

REPORT INFORMATION
  Report Type: Spontaneous
  Country: BR (occurrence: BR)
  Receive Date: 20180925
  Receipt Date: 20180925
  Transmission Date: 20181010
  Serious: Yes (Other)
  Sender: FDA-Public Use
  Company Number: BR-PFIZER INC-2018380900

PATIENT
  Sex: Female

DRUGS (1)
  1. LORAX [Suspect]
     Active Substance: LORAZEPAM
     Dosage: 2 MG, DAILY (HALF TABLET IN THE MORNING AND HALF IN THE AFTERNOON)

REACTIONS (4)
  - Drug dependence [Unknown]
  - Product use issue [Unknown]
  - Blood pressure increased [Unknown]
  - Feeling abnormal [Unknown]
